FAERS Safety Report 6865282-5 (Version None)
Quarter: 2010Q3

REPORT INFORMATION
  Report Type: 
  Country: None (occurrence: None)
  Receive Date: 20100721
  Receipt Date: 20080416
  Transmission Date: 20110219
  Serious: No
  Sender: FDA-Public Use
  Company Number: US-PFIZER INC-2008036067

PATIENT
  Sex: Female
  Weight: 59.4 kg

DRUGS (6)
  1. CHANTIX [Suspect]
     Indication: SMOKING CESSATION THERAPY
     Route: 048
     Dates: start: 20080401, end: 20080412
  2. LAMICTAL [Concomitant]
  3. DRUG, UNSPECIFIED [Concomitant]
  4. ANTIBIOTICS [Concomitant]
  5. ACETYLSALICYLIC ACID [Concomitant]
  6. STOOL SOFTENER [Concomitant]

REACTIONS (1)
  - DYSPNOEA [None]
